FAERS Safety Report 8791863 (Version 1)
Quarter: 2012Q4

REPORT INFORMATION
  Report Type: 
  Country: US (occurrence: US)
  Receive Date: 20120918
  Receipt Date: 20120918
  Transmission Date: 20130627
  Serious: Yes (Hospitalization)
  Sender: FDA-Public Use
  Company Number: US-ELI_LILLY_AND_COMPANY-US201209002403

PATIENT

DRUGS (1)
  1. HUMATROPE [Suspect]
     Dosage: 2 mg, qd
     Route: 065
     Dates: start: 201204

REACTIONS (1)
  - Adverse event [Unknown]
